FAERS Safety Report 9405970 (Version 1)
Quarter: 2013Q3

REPORT INFORMATION
  Report Type: Spontaneous
  Country: PL (occurrence: PL)
  Receive Date: 20130717
  Receipt Date: 20130717
  Transmission Date: 20140515
  Serious: Yes (Other)
  Sender: FDA-Public Use
  Company Number: PL-GLAXOSMITHKLINE-B0908405A

PATIENT
  Age: 77 Year
  Sex: Female

DRUGS (1)
  1. CEFUROXIME [Suspect]
     Indication: PRODUCT USED FOR UNKNOWN INDICATION
     Route: 042

REACTIONS (1)
  - Nosocomial infection [Unknown]
